FAERS Safety Report 4489782-0 (Version None)
Quarter: 2004Q4

REPORT INFORMATION
  Report Type: 
  Country: None (occurrence: None)
  Receive Date: 20041026
  Receipt Date: 20041007
  Transmission Date: 20050328
  Serious: Yes (Hospitalization)
  Sender: FDA-Public Use
  Company Number: JP_040904629

PATIENT
  Age: 17 Year
  Sex: Female
  Weight: 17 kg

DRUGS (7)
  1. VANCOMYCIN HCL [Suspect]
     Indication: CLOSTRIDIUM COLITIS
     Dosage: 125 MG/4 DAY
     Dates: start: 20040809, end: 20040812
  2. TIENAM [Concomitant]
  3. AMINOFLUID [Concomitant]
  4. METOCLOPRAMIDE [Concomitant]
  5. PANTOL (DEXPANTHENOL) [Concomitant]
  6. SODIUM CHLORIDE INJ [Concomitant]
  7. POTASSIUM CHLORIDE [Concomitant]

REACTIONS (8)
  - ACTIVATED PARTIAL THROMBOPLASTIN TIME PROLONGED [None]
  - ALANINE AMINOTRANSFERASE INCREASED [None]
  - ANTITHROMBIN III DECREASED [None]
  - ASPARTATE AMINOTRANSFERASE INCREASED [None]
  - COAGULOPATHY [None]
  - DISSEMINATED INTRAVASCULAR COAGULATION [None]
  - HEPATIC FUNCTION ABNORMAL [None]
  - PROTHROMBIN TIME PROLONGED [None]
